FAERS Safety Report 5194961-3 (Version None)
Quarter: 2006Q4

REPORT INFORMATION
  Report Type: 
  Country: None (occurrence: None)
  Receive Date: 20061229
  Receipt Date: 20061220
  Transmission Date: 20070319
  Serious: Yes (Other)
  Sender: FDA-Public Use
  Company Number: JP-BRISTOL-MYERS SQUIBB COMPANY-13624499

PATIENT
  Age: 61 Year
  Sex: Male

DRUGS (3)
  1. BRISPLATIN [Suspect]
     Indication: GASTRIC CANCER
     Route: 041
     Dates: start: 20061102, end: 20061102
  2. TS-1 [Suspect]
     Indication: GASTRIC CANCER
     Route: 048
     Dates: start: 20061026, end: 20061114
  3. SHAKUYAKU-KANZOH-TOH [Suspect]
     Indication: HICCUPS
     Route: 048
     Dates: start: 20061103, end: 20061110

REACTIONS (1)
  - TOXIC SKIN ERUPTION [None]
